FAERS Safety Report 14951520 (Version 8)
Quarter: 2025Q3

REPORT INFORMATION
  Report Type: Report from Study
  Country: JP (occurrence: JP)
  Receive Date: 20180530
  Receipt Date: 20250918
  Transmission Date: 20251020
  Serious: Yes (Death, Life-Threatening, Hospitalization, Other)
  Sender: NOVARTIS
  Company Number: PHJP2018JP011548

PATIENT
  Age: 70 Year
  Sex: Female

DRUGS (3)
  1. TAFINLAR [Suspect]
     Active Substance: DABRAFENIB MESYLATE
     Indication: Malignant melanoma stage IV
     Route: 048
     Dates: start: 20170412, end: 20170428
  2. TAFINLAR [Suspect]
     Active Substance: DABRAFENIB MESYLATE
     Route: 048
     Dates: start: 20170516, end: 20171015
  3. MEKINIST [Suspect]
     Active Substance: TRAMETINIB DIMETHYL SULFOXIDE
     Indication: Malignant melanoma stage IV
     Dosage: 2 MG, QD
     Route: 048
     Dates: start: 20170412, end: 20170428

REACTIONS (23)
  - Malignant ascites [Fatal]
  - Abdominal pain [Fatal]
  - Cardiac arrest [Fatal]
  - Malignant melanoma stage IV [Fatal]
  - Malignant neoplasm progression [Fatal]
  - Abdominal distension [Not Recovered/Not Resolved]
  - Dysuria [Unknown]
  - Pyrexia [Recovering/Resolving]
  - Chills [Unknown]
  - Rhabdomyolysis [Recovering/Resolving]
  - Myoglobinuria [Recovered/Resolved]
  - Blood creatine phosphokinase increased [Recovering/Resolving]
  - Malaise [Unknown]
  - Hypoaesthesia [Unknown]
  - Tremor [Unknown]
  - Intra-abdominal haemorrhage [Unknown]
  - Performance status decreased [Unknown]
  - Blood pressure decreased [Recovering/Resolving]
  - Pleural effusion [Recovering/Resolving]
  - Generalised oedema [Recovering/Resolving]
  - Blood potassium decreased [Unknown]
  - Blood sodium decreased [Unknown]
  - Oedema peripheral [Unknown]

NARRATIVE: CASE EVENT DATE: 20170401
